FAERS Safety Report 6269279-8 (Version None)
Quarter: 2009Q3

REPORT INFORMATION
  Report Type: 
  Country: None (occurrence: None)
  Receive Date: 20090715
  Receipt Date: 20090706
  Transmission Date: 20100115
  Serious: Yes (Hospitalization)
  Sender: FDA-Public Use
  Company Number: PHHY2009BR27638

PATIENT
  Age: 60 Year
  Sex: Female

DRUGS (5)
  1. MIFLASONE [Suspect]
     Dosage: 400 UG
  2. FORADIL [Suspect]
     Dosage: 12/400MCG
  3. METICORTEN [Concomitant]
  4. AZITHROMYCIN [Concomitant]
  5. RIVOTRIL [Concomitant]

REACTIONS (2)
  - BACTERIAL INFECTION [None]
  - WHITE BLOOD CELL DISORDER [None]
